FAERS Safety Report 24227681 (Version 2)
Quarter: 2024Q4

REPORT INFORMATION
  Report Type: Report from Study
  Country: US (occurrence: US)
  Receive Date: 20240820
  Receipt Date: 20241101
  Transmission Date: 20250114
  Serious: Yes (Other)
  Sender: UCB
  Company Number: US-UCBSA-2024041475

PATIENT
  Sex: Female
  Weight: 52.707 kg

DRUGS (5)
  1. CERTOLIZUMAB PEGOL [Suspect]
     Active Substance: CERTOLIZUMAB PEGOL
     Indication: Rheumatoid arthritis
     Dosage: 400 MILLIGRAM,INJECT 200 MG INTO THE SKIN EVERY 14 DAYS
     Route: 058
     Dates: start: 20200226
  2. CERTOLIZUMAB PEGOL [Suspect]
     Active Substance: CERTOLIZUMAB PEGOL
     Dosage: 200 MILLIGRAM, EV 2 WEEKS(QOW)
     Route: 058
     Dates: start: 20231128
  3. CERTOLIZUMAB PEGOL [Suspect]
     Active Substance: CERTOLIZUMAB PEGOL
     Dosage: 400 MILLIGRAM, INJECT 200 MG INTO THE SKIN EVERY 14 DAYS
     Route: 058
     Dates: start: 20240227
  4. METHYLPHENIDATE [Concomitant]
     Active Substance: METHYLPHENIDATE
     Indication: Product used for unknown indication
     Dosage: 54 MILLIGRAM, ONCE DAILY (QD)
     Route: 048
  5. METHYLPHENIDATE [Concomitant]
     Active Substance: METHYLPHENIDATE
     Dosage: 36 MILLIGRAM,ER TABLETS EXTENDED RELEASE 24 HRS,1 TABLET BY MOUTH ONCE DAILY (EVERY DAY IN THE MORNI

REACTIONS (4)
  - Rheumatoid arthritis [Not Recovered/Not Resolved]
  - Nodule [Unknown]
  - Product dose omission issue [Unknown]
  - Drug ineffective [Unknown]
